FAERS Safety Report 17174892 (Version 2)
Quarter: 2020Q2

REPORT INFORMATION
  Report Type: Other
  Country: CA (occurrence: CA)
  Receive Date: 20191219
  Receipt Date: 20200617
  Transmission Date: 20200713
  Serious: Yes (Other)
  Sender: FDA-Public Use
  Company Number: CA-BECTON DICKINSON-2019BDN00431

PATIENT
  Age: 42 Year
  Sex: Female
  Weight: 81 kg

DRUGS (40)
  1. CHLORHEXIDINE GLUCONATE. [Suspect]
     Active Substance: CHLORHEXIDINE GLUCONATE
     Route: 048
  2. PERCOCET [Suspect]
     Active Substance: ACETAMINOPHEN\OXYCODONE HYDROCHLORIDE
  3. NUTRASEA+D [Concomitant]
  4. CIMZIA [Suspect]
     Active Substance: CERTOLIZUMAB PEGOL
     Dosage: 400 MG
     Route: 058
  5. CIMZIA [Suspect]
     Active Substance: CERTOLIZUMAB PEGOL
     Dosage: 200 MG, ^1 EVERY 2 MONTHS^
     Route: 058
  6. ALFACALCIDOL [Concomitant]
     Active Substance: ALFACALCIDOL
  7. CIMZIA [Suspect]
     Active Substance: CERTOLIZUMAB PEGOL
     Indication: RHEUMATOID ARTHRITIS
     Dosage: 200 MG
     Route: 058
  8. CIMZIA [Suspect]
     Active Substance: CERTOLIZUMAB PEGOL
     Dosage: 400 MG, ^1 EVERY 2 MONTHS^
     Route: 058
  9. ENBREL [Suspect]
     Active Substance: ETANERCEPT
     Indication: RHEUMATOID ARTHRITIS
     Route: 058
  10. ORENCIA [Suspect]
     Active Substance: ABATACEPT
  11. ZOPICLONE [Concomitant]
     Active Substance: ZOPICLONE
  12. CHOLECALCIFEROL [Concomitant]
     Active Substance: CHOLECALCIFEROL
  13. DESOGESTREL AND ETHINYLESTRADIOL [Concomitant]
  14. VITAMIN D [VITAMIN D NOS] [Concomitant]
     Active Substance: VITAMIN D NOS
  15. LEFLUNOMIDE. [Suspect]
     Active Substance: LEFLUNOMIDE
  16. OXYCODONE [Suspect]
     Active Substance: OXYCODONE
  17. REACTINE [Concomitant]
  18. VENTOLIN [Concomitant]
     Active Substance: ALBUTEROL SULFATE
  19. CETIRIZINE HYDROCHLORIDE. [Concomitant]
     Active Substance: CETIRIZINE HYDROCHLORIDE
  20. HYDROXYCHLOROQUINE [Concomitant]
     Active Substance: HYDROXYCHLOROQUINE
  21. PANTOPRAZOLE [Concomitant]
     Active Substance: PANTOPRAZOLE
  22. PREDNISONE. [Concomitant]
     Active Substance: PREDNISONE
  23. ACETAMINOPHEN. [Suspect]
     Active Substance: ACETAMINOPHEN
  24. ACTEMRA [Suspect]
     Active Substance: TOCILIZUMAB
  25. ARAVA [Suspect]
     Active Substance: LEFLUNOMIDE
  26. TYLENOL [Concomitant]
     Active Substance: ACETAMINOPHEN
  27. VITAMIN C [Concomitant]
     Active Substance: ASCORBIC ACID
  28. PLAQUENIL [Concomitant]
     Active Substance: HYDROXYCHLOROQUINE SULFATE
  29. CHLORHEXIDINE [Suspect]
     Active Substance: CHLORHEXIDINE
  30. METHOTREXATE. [Suspect]
     Active Substance: METHOTREXATE
     Dosage: UNK
  31. IBUPROFEN. [Concomitant]
     Active Substance: IBUPROFEN
  32. CAMELLIA SINENSIS / D-ALPHA TOCOPHEROL / FISH OIL / VITAMIN D3 [Concomitant]
  33. HYDROXYCHLOROQUINE SULFATE. [Concomitant]
     Active Substance: HYDROXYCHLOROQUINE SULFATE
  34. VENTOLIN [Concomitant]
     Active Substance: ALBUTEROL SULFATE
  35. OXYCODONE TEREPHTHALATE [Suspect]
     Active Substance: OXYCODONE TEREPHTHALATE
  36. SIMPONI [Suspect]
     Active Substance: GOLIMUMAB
     Route: 058
  37. SULFAMETHOXAZOLE AND TRIMETHOPRIM [Suspect]
     Active Substance: SULFAMETHOXAZOLE\TRIMETHOPRIM
  38. COENZYME Q10 [Concomitant]
     Active Substance: UBIDECARENONE
  39. FISH OIL [Concomitant]
     Active Substance: FISH OIL
  40. VITAMIN C [Concomitant]
     Active Substance: ASCORBIC ACID

REACTIONS (21)
  - Headache [Recovered/Resolved]
  - Peripheral swelling [Recovered/Resolved]
  - Vomiting [Recovered/Resolved]
  - Joint swelling [Recovered/Resolved]
  - Night sweats [Recovered/Resolved]
  - Sinusitis [Recovered/Resolved]
  - Ear pain [Recovered/Resolved]
  - Muscle spasticity [Recovered/Resolved]
  - Pruritus [Recovered/Resolved]
  - Rash [Recovered/Resolved]
  - Asthenia [Recovered/Resolved]
  - Body temperature increased [Recovered/Resolved]
  - Lower respiratory tract infection [Recovered/Resolved]
  - Off label use [Recovered/Resolved]
  - Diarrhoea [Recovered/Resolved]
  - Urticaria [Recovered/Resolved]
  - Abdominal pain upper [Recovered/Resolved]
  - Back pain [Recovered/Resolved]
  - Insomnia [Recovered/Resolved]
  - Pain [Recovered/Resolved]
  - Respiratory disorder [Recovered/Resolved]
